FAERS Safety Report 25548256 (Version 1)
Quarter: 2025Q3

REPORT INFORMATION
  Report Type: Other
  Country: GB (occurrence: GB)
  Receive Date: 20250714
  Receipt Date: 20250714
  Transmission Date: 20251020
  Serious: Yes (Other)
  Sender: MACLEODS
  Company Number: None

PATIENT

DRUGS (2)
  1. TOLTERODINE [Suspect]
     Active Substance: TOLTERODINE
     Indication: Bladder spasm
     Dosage: 1MG ONCE DAILY IN THE MORNING
     Route: 065
     Dates: start: 20250619, end: 20250702
  2. TOLTERODINE [Suspect]
     Active Substance: TOLTERODINE
     Indication: Urinary incontinence

REACTIONS (2)
  - Joint swelling [Not Recovered/Not Resolved]
  - Pain in extremity [Not Recovered/Not Resolved]

NARRATIVE: CASE EVENT DATE: 20250629
